FAERS Safety Report 8588207-3 (Version None)
Quarter: 2012Q3

REPORT INFORMATION
  Report Type: 
  Country: None (occurrence: None)
  Receive Date: 20120803
  Receipt Date: 20120803
  Transmission Date: 20120928
  Serious: Yes (Hospitalization)
  Sender: FDA-Public Use
  Company Number: None

PATIENT
  Age: 57 Year
  Sex: Female
  Weight: 79.3795 kg

DRUGS (3)
  1. TELAPREVIR 375 MG VERTEX [Suspect]
     Indication: HEPATITIS C
     Dosage: 375 MG TABLETS TID PO
     Route: 048
     Dates: start: 20120319, end: 20120421
  2. RIBAVIRIN [Suspect]
     Indication: HEPATITIS C
     Dosage: 1200 MG PO DAILY
     Route: 048
     Dates: start: 20120319, end: 20120421
  3. PEGASYS [Suspect]
     Indication: HEPATITIS C
     Dosage: 180 MCG SQ WEEKLY
     Route: 058
     Dates: start: 20120319, end: 20120421

REACTIONS (7)
  - RECTAL HAEMORRHAGE [None]
  - HAEMORRHOIDS [None]
  - PANCYTOPENIA [None]
  - LARGE INTESTINAL ULCER [None]
  - RECTAL ULCER [None]
  - LOWER GASTROINTESTINAL HAEMORRHAGE [None]
  - BLOOD PRODUCT TRANSFUSION DEPENDENT [None]
